FAERS Safety Report 11481923 (Version 2)
Quarter: 2015Q3

REPORT INFORMATION
  Report Type: Spontaneous
  Country: US (occurrence: US)
  Receive Date: 20150903
  Receipt Date: 20150903
  Transmission Date: 20151125
  Serious: No
  Sender: FDA-Public Use
  Company Number: US-ELI_LILLY_AND_COMPANY-US201203008342

PATIENT
  Age: 55 Year
  Sex: Male

DRUGS (3)
  1. CYMBALTA [Suspect]
     Active Substance: DULOXETINE HYDROCHLORIDE
     Indication: FIBROMYALGIA
     Dosage: 60 MG, QD
  2. CYMBALTA [Suspect]
     Active Substance: DULOXETINE HYDROCHLORIDE
     Dosage: UNK, QD
     Dates: start: 201202
  3. LYRICA [Concomitant]
     Active Substance: PREGABALIN

REACTIONS (6)
  - Drug effect incomplete [Unknown]
  - Wrong technique in product usage process [Not Recovered/Not Resolved]
  - Tremor [Unknown]
  - Abdominal distension [Unknown]
  - Irritability [Unknown]
  - Drug withdrawal syndrome [Unknown]
